FAERS Safety Report 6279658-0 (Version None)
Quarter: 2009Q3

REPORT INFORMATION
  Report Type: 
  Country: None (occurrence: None)
  Receive Date: 20090723
  Receipt Date: 20090717
  Transmission Date: 20100115
  Serious: Yes (Hospitalization)
  Sender: FDA-Public Use
  Company Number: IT-BAYER-200924854GPV

PATIENT
  Age: 78 Year
  Sex: Male

DRUGS (5)
  1. NEXAVAR [Suspect]
     Indication: HEPATIC NEOPLASM MALIGNANT
     Dosage: TOTAL DAILY DOSE: 800 MG
     Route: 048
     Dates: start: 20090526, end: 20090702
  2. ATENOLOL AND CHLORTHALIDONE [Concomitant]
     Route: 048
     Dates: start: 20030101, end: 20090702
  3. COUMADIN [Concomitant]
     Route: 048
     Dates: start: 20060101, end: 20090702
  4. CALCIUM SANDOZ [Concomitant]
     Route: 048
     Dates: start: 20050404, end: 20090702
  5. CLEXANE T (ENOXAPARIN SODIUM) [Concomitant]
     Route: 058
     Dates: start: 20090626, end: 20090702

REACTIONS (6)
  - ASTHENIA [None]
  - DECREASED APPETITE [None]
  - GENERAL PHYSICAL HEALTH DETERIORATION [None]
  - LEUKOPENIA [None]
  - NAUSEA [None]
  - THROMBOCYTOPENIA [None]
